FAERS Safety Report 6878213-9 (Version None)
Quarter: 2010Q2

REPORT INFORMATION
  Report Type: 
  Country: None (occurrence: None)
  Receive Date: 20100623
  Receipt Date: 20081202
  Transmission Date: 20101027
  Serious: No
  Sender: FDA-Public Use
  Company Number: 2008-00140

PATIENT
  Age: 46 Year
  Sex: Male
  Weight: 95.2554 kg

DRUGS (1)
  1. ZICAM COLD REMEDY GEL SWABS [Suspect]
     Dosage: QD X 1 DOSE
     Dates: start: 20081101

REACTIONS (2)
  - AGEUSIA [None]
  - ANOSMIA [None]
